FAERS Safety Report 5989536-X (Version None)
Quarter: 2008Q4

REPORT INFORMATION
  Report Type: 
  Country: None (occurrence: None)
  Receive Date: 20081208
  Receipt Date: 20081124
  Transmission Date: 20090506
  Serious: Yes (Hospitalization)
  Sender: FDA-Public Use
  Company Number: 2008US001823

PATIENT
  Age: 56 Year
  Sex: Male
  Weight: 113.4 kg

DRUGS (9)
  1. AMEVIVE [Suspect]
     Indication: PSORIASIS
     Dosage: 15 MG, WEEKLY, INTRAMUSCULAR
     Route: 030
     Dates: start: 20051102
  2. RAPTIVA [Concomitant]
  3. ZITHROMAX [Concomitant]
  4. TUSSIONEX (PHENYLTOLOXAMINE) [Concomitant]
  5. SOLU-MEDROL [Concomitant]
  6. LISINOPRIL [Concomitant]
  7. ASPIRIN [Concomitant]
  8. HYDROCHLOROTHIAZIDE [Concomitant]
  9. LEXAPRO [Concomitant]

REACTIONS (4)
  - DIARRHOEA [None]
  - INFLUENZA [None]
  - INSOMNIA [None]
  - PNEUMONIA [None]
